FAERS Safety Report 25251681 (Version 1)
Quarter: 2025Q2

REPORT INFORMATION
  Report Type: Spontaneous
  Country: BR (occurrence: BR)
  Receive Date: 20250429
  Receipt Date: 20250429
  Transmission Date: 20250717
  Serious: Yes (Life-Threatening, Hospitalization, Other)
  Sender: PFIZER
  Company Number: BR-PFIZER INC-PV202500050453

PATIENT
  Age: 69 Year
  Sex: Male
  Weight: 78.5 kg

DRUGS (2)
  1. PRISTIQ EXTENDED-RELEASE [Suspect]
     Active Substance: DESVENLAFAXINE SUCCINATE
     Indication: Depressed level of consciousness
     Dosage: 100 MG, 1X/DAY (50MG, 2 CP PER DAY)
     Route: 048
     Dates: start: 20250404, end: 20250404
  2. PRISTIQ EXTENDED-RELEASE [Suspect]
     Active Substance: DESVENLAFAXINE SUCCINATE
     Dosage: 50 MG, DAILY
     Route: 048
     Dates: start: 20250405, end: 20250405

REACTIONS (2)
  - Urinary retention [Recovered/Resolved]
  - Cardiac output increased [Recovered/Resolved]

NARRATIVE: CASE EVENT DATE: 20250405
